FAERS Safety Report 9540655 (Version 1)
Quarter: 2013Q3

REPORT INFORMATION
  Report Type: Spontaneous
  Country: FR (occurrence: FR)
  Receive Date: 20130920
  Receipt Date: 20130920
  Transmission Date: 20140515
  Serious: Yes (Hospitalization)
  Sender: FDA-Public Use
  Company Number: FR-VERTEX PHARMACEUTICALS INC-2013-009777

PATIENT
  Age: 71 Year
  Sex: Female
  Weight: 58.2 kg

DRUGS (5)
  1. INCIVO [Suspect]
     Indication: HEPATITIS C
     Dosage: 750 MG, TID
     Route: 065
     Dates: start: 20111219
  2. PEGASYS [Suspect]
     Indication: HEPATITIS C
     Dosage: 180 MG, QW
     Route: 065
     Dates: start: 20111219
  3. COPEGUS [Suspect]
     Indication: HEPATITIS C
     Dosage: 1000 MG, UNK
     Route: 065
     Dates: start: 20111219
  4. NEORECORMON [Suspect]
     Indication: ANAEMIA
     Dosage: 30000 IU, UNK (TWICE PER WEEK)
     Route: 065
     Dates: start: 20120126
  5. SEROPRAM [Suspect]
     Indication: AFFECTIVE DISORDER
     Dosage: 0.5 DF, QD (HALF PER DAY)
     Route: 065
     Dates: start: 20120111

REACTIONS (4)
  - Bundle branch block left [Unknown]
  - Malnutrition [Unknown]
  - Oxygen saturation decreased [Unknown]
  - Pancytopenia [Recovered/Resolved]
